FAERS Safety Report 9482542 (Version 1)
Quarter: 2013Q3

REPORT INFORMATION
  Report Type: Spontaneous
  Country: US (occurrence: US)
  Receive Date: 20130828
  Receipt Date: 20130828
  Transmission Date: 20140515
  Serious: No
  Sender: FDA-Public Use
  Company Number: US-SANOFI-AVENTIS-2012SA060652

PATIENT
  Sex: Male

DRUGS (1)
  1. ELIGARD [Suspect]
     Route: 065

REACTIONS (3)
  - Male sexual dysfunction [Not Recovered/Not Resolved]
  - Fatigue [Not Recovered/Not Resolved]
  - Blood testosterone abnormal [Not Recovered/Not Resolved]
